FAERS Safety Report 13755370 (Version 1)
Quarter: 2017Q3

REPORT INFORMATION
  Report Type: Spontaneous
  Country: GB (occurrence: GB)
  Receive Date: 20170714
  Receipt Date: 20170714
  Transmission Date: 20171127
  Serious: Yes (Hospitalization, Other)
  Sender: FDA-Public Use
  Company Number: GB-009507513-1707GBR002363

PATIENT
  Age: 62 Year
  Sex: Female
  Weight: 63 kg

DRUGS (4)
  1. VIEKIRAX [Suspect]
     Active Substance: OMBITASVIR\PARITAPREVIR\RITONAVIR
     Indication: CHRONIC HEPATITIS C
     Dosage: 2 DF, QD
     Route: 048
     Dates: start: 20160830
  2. EXVIERA [Suspect]
     Active Substance: DASABUVIR
     Indication: CHRONIC HEPATITIS C
     Route: 048
     Dates: start: 20160830, end: 20161121
  3. REBETOL [Suspect]
     Active Substance: RIBAVIRIN
     Indication: CHRONIC HEPATITIS C
     Dosage: 400 MG BID
     Route: 048
     Dates: start: 20160830, end: 20161121
  4. TRAMADOL HYDROCHLORIDE. [Concomitant]
     Active Substance: TRAMADOL HYDROCHLORIDE
     Dosage: 100 MG QID

REACTIONS (5)
  - Atrial fibrillation [Recovered/Resolved with Sequelae]
  - Palpitations [Unknown]
  - Acute coronary syndrome [Unknown]
  - Tinnitus [Not Recovered/Not Resolved]
  - Chest pain [Unknown]

NARRATIVE: CASE EVENT DATE: 20161030
